FAERS Safety Report 24335916 (Version 1)
Quarter: 2024Q3

REPORT INFORMATION
  Report Type: Report from Study
  Country: ID (occurrence: ID)
  Receive Date: 20240919
  Receipt Date: 20240919
  Transmission Date: 20241016
  Serious: No
  Sender: ROCHE
  Company Number: ID-ROCHE-3427243

PATIENT
  Age: 36 Year
  Sex: Female

DRUGS (17)
  1. OSELTAMIVIR [Suspect]
     Active Substance: OSELTAMIVIR
     Indication: COVID-19
     Route: 065
  2. CLOBAZAM [Concomitant]
     Active Substance: CLOBAZAM
  3. SUKRALFAT [Concomitant]
  4. ZINC [Concomitant]
     Active Substance: ZINC
  5. VITAMIN C [Concomitant]
     Active Substance: ASCORBIC ACID
  6. DOMPERIDONE [Concomitant]
     Active Substance: DOMPERIDONE
  7. OMEPRAZOLE [Concomitant]
     Active Substance: OMEPRAZOLE
  8. DIMETHICONE [Concomitant]
     Active Substance: DIMETHICONE
  9. LEVOFLOKSASIN [Concomitant]
  10. HERBALS\TURMERIC [Concomitant]
     Active Substance: HERBALS\TURMERIC
  11. RISPERIDONE [Concomitant]
     Active Substance: RISPERIDONE
  12. DIMENHYDRINATE [Concomitant]
     Active Substance: DIMENHYDRINATE
  13. BETAHISTINE [Concomitant]
     Active Substance: BETAHISTINE
  14. LACTULAX [Concomitant]
  15. FOSFOMYCIN TROMETHAMINE [Concomitant]
     Active Substance: FOSFOMYCIN TROMETHAMINE
  16. AZITROMISIN [Concomitant]
  17. HEPARIN [Concomitant]
     Active Substance: HEPARIN SODIUM

REACTIONS (4)
  - Off label use [Unknown]
  - Alanine aminotransferase increased [Unknown]
  - Aspartate aminotransferase increased [Unknown]
  - Ulcer [Unknown]
